FAERS Safety Report 7804561-1 (Version None)
Quarter: 2011Q4

REPORT INFORMATION
  Report Type: 
  Country: None (occurrence: None)
  Receive Date: 20111010
  Receipt Date: 20110928
  Transmission Date: 20120403
  Serious: Yes (Hospitalization)
  Sender: FDA-Public Use
  Company Number: PHHY2010MX82181

PATIENT
  Age: 62 Year
  Sex: Female

DRUGS (2)
  1. BACTRIM [Concomitant]
     Indication: URINARY TRACT INFECTION
     Dosage: UNK UKN, UNK
  2. RASILEZ [Suspect]
     Indication: HYPERTENSION
     Dosage: 1 DF, QD
     Route: 048
     Dates: start: 20090101

REACTIONS (4)
  - DYSURIA [None]
  - BLOOD CREATININE INCREASED [None]
  - RENAL FAILURE [None]
  - FACE OEDEMA [None]
